FAERS Safety Report 13704217 (Version 1)
Quarter: 2017Q2

REPORT INFORMATION
  Report Type: Spontaneous
  Country: FR (occurrence: FR)
  Receive Date: 20170630
  Receipt Date: 20170630
  Transmission Date: 20170830
  Serious: Yes (Hospitalization, Other)
  Sender: FDA-Public Use
  Company Number: FR-BAXTER-2017BAX025713

PATIENT
  Age: 83 Year
  Sex: Male

DRUGS (21)
  1. ENDOXAN 50 MG, COMPRIM? ENROB? [Suspect]
     Active Substance: CYCLOPHOSPHAMIDE
     Dosage: THIRD COURSE OF RCD PROTOCOL
     Route: 048
     Dates: start: 20170106
  2. ENDOXAN 50 MG, COMPRIM? ENROB? [Suspect]
     Active Substance: CYCLOPHOSPHAMIDE
     Dosage: NEW COURSE OF RCD PROTOCOL
     Route: 048
     Dates: start: 20170330
  3. DEXAMETHASONE. [Suspect]
     Active Substance: DEXAMETHASONE
     Dosage: THIRD COURSE OF RCD PROTOCOL, DOSE AND STRENGTH: 20 MG /5 ML, SOLUTION FOR INJECTION IN VIAL
     Route: 042
     Dates: start: 20170106
  4. MABTHERA [Suspect]
     Active Substance: RITUXIMAB
     Dosage: NEW COURSE OF RCD PROTOCOL
     Route: 042
     Dates: start: 20170330, end: 20170330
  5. DEXAMETHASONE. [Suspect]
     Active Substance: DEXAMETHASONE
     Indication: LYMPHOPLASMACYTOID LYMPHOMA/IMMUNOCYTOMA
     Dosage: 8 COURSES OF RCD PROTOCOL, STRENGTH: 20 MG/5ML SOLUTION FOR INJECTION IN VIAL
     Route: 065
     Dates: start: 2011
  6. DEXAMETHASONE. [Suspect]
     Active Substance: DEXAMETHASONE
     Dosage: NEW COURSE OF RCD PROTOCOL, DOSE AND STRENGTH: 20 MG /5 ML, SOLUTION FOR INJECTION IN VIAL
     Route: 042
     Dates: start: 20170309
  7. BACTRIM [Suspect]
     Active Substance: SULFAMETHOXAZOLE\TRIMETHOPRIM
     Indication: PRODUCT USED FOR UNKNOWN INDICATION
     Route: 065
  8. ENDOXAN 50 MG, COMPRIM? ENROB? [Suspect]
     Active Substance: CYCLOPHOSPHAMIDE
     Dosage: RCD PROTOCOL
     Route: 048
     Dates: end: 20170403
  9. DEXAMETHASONE. [Suspect]
     Active Substance: DEXAMETHASONE
     Indication: MONOCLONAL GAMMOPATHY
     Dosage: RCD PROTOCOL, DOSE AND STRENGTH: 20 MG /5 ML, SOLUTION FOR INJECTION IN VIAL
     Route: 042
     Dates: start: 20161215
  10. ENDOXAN 50 MG, COMPRIM? ENROB? [Suspect]
     Active Substance: CYCLOPHOSPHAMIDE
     Indication: LYMPHOPLASMACYTOID LYMPHOMA/IMMUNOCYTOMA
     Dosage: 8 COURSES OF RCD CHEMOTHERAPY PROTOCOL
     Route: 065
     Dates: start: 2011
  11. MABTHERA [Suspect]
     Active Substance: RITUXIMAB
     Indication: LYMPHOPLASMACYTOID LYMPHOMA/IMMUNOCYTOMA
     Dosage: 8 COURSES OF RCD PROTOCOL
     Route: 065
     Dates: start: 2011
  12. ENDOXAN 50 MG, COMPRIM? ENROB? [Suspect]
     Active Substance: CYCLOPHOSPHAMIDE
     Indication: MONOCLONAL GAMMOPATHY
     Dosage: RCD PROTOCOL
     Route: 048
     Dates: start: 20161215
  13. DEXAMETHASONE. [Suspect]
     Active Substance: DEXAMETHASONE
     Dosage: NEW COURSE OF RCD PROTOCOL, DOSE AND STRENGTH: 20 MG /5 ML, SOLUTION FOR INJECTION IN VIAL
     Route: 042
     Dates: start: 20170330, end: 20170330
  14. ENDOXAN 50 MG, COMPRIM? ENROB? [Suspect]
     Active Substance: CYCLOPHOSPHAMIDE
     Dosage: NEW COURSE OF RCD PROTOCOL
     Route: 048
     Dates: start: 20170309
  15. MABTHERA [Suspect]
     Active Substance: RITUXIMAB
     Indication: MONOCLONAL GAMMOPATHY
     Dosage: RCD PROTOCOL
     Route: 042
     Dates: start: 20161215
  16. ZELITREX [Suspect]
     Active Substance: VALACYCLOVIR HYDROCHLORIDE
     Indication: PRODUCT USED FOR UNKNOWN INDICATION
     Dosage: STRENGTH : 500 (UNITS NOT REPORTED), IN THE MORNING AND IN THE EVENING
     Route: 065
  17. METFORMINE [Suspect]
     Active Substance: METFORMIN HYDROCHLORIDE
     Indication: PRODUCT USED FOR UNKNOWN INDICATION
     Dosage: STRENGTH: 500 (UNITS NOT REPORTED), ONE IN THE MORNING
     Route: 065
  18. EPREX [Suspect]
     Active Substance: ERYTHROPOIETIN
     Indication: PRODUCT USED FOR UNKNOWN INDICATION
     Dosage: STRENGTH: 40000 (UNITS NOT REPORTED)
     Route: 065
  19. MABTHERA [Suspect]
     Active Substance: RITUXIMAB
     Dosage: THIRD COURSE OF RCD PROTOCOL
     Route: 042
     Dates: start: 20170106
  20. MABTHERA [Suspect]
     Active Substance: RITUXIMAB
     Dosage: NEW COURSE OF RCD PROTOCOL
     Route: 042
     Dates: start: 20170309
  21. LEDERFOLINE [Suspect]
     Active Substance: LEUCOVORIN CALCIUM
     Indication: PRODUCT USED FOR UNKNOWN INDICATION
     Dosage: ONE ON SUNDAY
     Route: 065

REACTIONS (10)
  - Agranulocytosis [Recovered/Resolved]
  - General physical health deterioration [Unknown]
  - Asthenia [Unknown]
  - Lung infection [Unknown]
  - Pharyngeal erythema [Unknown]
  - Oral dysaesthesia [Unknown]
  - Bundle branch block right [Unknown]
  - Feeling abnormal [Unknown]
  - Aspergillus test positive [Unknown]
  - Bronchial disorder [Unknown]

NARRATIVE: CASE EVENT DATE: 201701
